FAERS Safety Report 15754469 (Version 10)
Quarter: 2021Q1

REPORT INFORMATION
  Report Type: Spontaneous
  Country: US (occurrence: US)
  Receive Date: 20181224
  Receipt Date: 20210324
  Transmission Date: 20210419
  Serious: Yes (Hospitalization, Other)
  Sender: FDA-Public Use
  Company Number: US-PFIZER INC-2018393483

PATIENT
  Age: 52 Year
  Sex: Female
  Weight: 86 kg

DRUGS (2)
  1. LYRICA [Suspect]
     Active Substance: PREGABALIN
     Indication: NEUROPATHY PERIPHERAL
     Dosage: UNK
     Dates: start: 2001
  2. LYRICA [Suspect]
     Active Substance: PREGABALIN
     Indication: AUTONOMIC NEUROPATHY
     Dosage: 300 MG, 3X/DAY (THREE OF 300 MG CAPSULE A DAY)
     Route: 048

REACTIONS (10)
  - Prescribed overdose [Unknown]
  - Fall [Recovered/Resolved with Sequelae]
  - Fatigue [Unknown]
  - Drug dependence [Unknown]
  - Malaise [Unknown]
  - Gait disturbance [Unknown]
  - Joint dislocation [Recovered/Resolved with Sequelae]
  - Off label use [Unknown]
  - Drug ineffective for unapproved indication [Unknown]
  - Thrombosis [Unknown]

NARRATIVE: CASE EVENT DATE: 2001
